FAERS Safety Report 5625154-0 (Version None)
Quarter: 2008Q1

REPORT INFORMATION
  Report Type: 
  Country: None (occurrence: None)
  Receive Date: 20080213
  Receipt Date: 20080208
  Transmission Date: 20080703
  Serious: Yes (Other)
  Sender: FDA-Public Use
  Company Number: FI-PFIZER INC-2008012240

PATIENT
  Sex: Female

DRUGS (2)
  1. SILDENAFIL (PAH) [Suspect]
     Indication: PULMONARY HYPERTENSION
  2. PROSTACYCLIN [Concomitant]

REACTIONS (1)
  - INTRA-UTERINE DEATH [None]
